FAERS Safety Report 25945715 (Version 1)
Quarter: 2025Q4

REPORT INFORMATION
  Report Type: Spontaneous
  Country: CN (occurrence: CN)
  Receive Date: 20251021
  Receipt Date: 20251021
  Transmission Date: 20260117
  Serious: Yes (Other)
  Sender: NOVARTIS
  Company Number: CN-002147023-NVSC2025CN160759

PATIENT
  Age: 54 Year
  Sex: Male

DRUGS (1)
  1. CYCLOSPORINE [Suspect]
     Active Substance: CYCLOSPORINE
     Indication: Graft versus host disease
     Dosage: 100.000 MG, BID
     Route: 048
     Dates: start: 20250926, end: 20251012

REACTIONS (2)
  - Blood pressure increased [Recovering/Resolving]
  - Blood creatinine increased [Recovering/Resolving]

NARRATIVE: CASE EVENT DATE: 20250928
